FAERS Safety Report 7472602-X (Version None)
Quarter: 2011Q2

REPORT INFORMATION
  Report Type: 
  Country: None (occurrence: None)
  Receive Date: 20110511
  Receipt Date: 20110427
  Transmission Date: 20111010
  Serious: Yes (Hospitalization, Other)
  Sender: FDA-Public Use
  Company Number: UA-CELGENEUS-269-C5013-07101759

PATIENT
  Sex: Female
  Weight: 47 kg

DRUGS (9)
  1. CIPROFLAXACIN [Concomitant]
     Route: 051
     Dates: start: 20070714, end: 20070720
  2. LENALIDOMIDE [Suspect]
     Dosage: 10 MILLIGRAM
     Route: 048
     Dates: start: 20070730, end: 20070901
  3. LENALIDOMIDE [Suspect]
     Indication: MULTIPLE MYELOMA
     Dosage: 10 MILLIGRAM
     Route: 048
     Dates: start: 20071010, end: 20071102
  4. ACETYL SALICYLIC ACID USP BAT [Concomitant]
     Route: 065
     Dates: start: 20070730, end: 20070924
  5. PREDNISONE TAB [Suspect]
     Indication: MULTIPLE MYELOMA
     Dosage: 2 MILLIGRAM/KILOGRAM
     Route: 048
     Dates: start: 20071001, end: 20071004
  6. MELPHALAN HYDROCHLORIDE [Suspect]
     Indication: MULTIPLE MYELOMA
     Dosage: .18 MILLIGRAM/KILOGRAM
     Route: 048
     Dates: start: 20071001, end: 20071004
  7. CIPROFLAXACIN [Concomitant]
     Route: 051
     Dates: start: 20070813, end: 20070819
  8. LENALIDOMIDE [Suspect]
     Dosage: 10 MILLIGRAM
     Route: 048
     Dates: start: 20071001, end: 20071021
  9. CIPROFLAXACIN [Concomitant]
     Route: 048
     Dates: start: 20070910, end: 20070916

REACTIONS (2)
  - DRUG ERUPTION [None]
  - DERMATITIS EXFOLIATIVE [None]
